FAERS Safety Report 11113724 (Version 2)
Quarter: 2015Q3

REPORT INFORMATION
  Report Type: Spontaneous
  Country: GB (occurrence: GB)
  Receive Date: 20150514
  Receipt Date: 20150702
  Transmission Date: 20151125
  Serious: Yes (Hospitalization, Other)
  Sender: FDA-Public Use
  Company Number: GB-GLAXOSMITHKLINE-GB2015064525

PATIENT
  Age: 32 Year
  Sex: Male

DRUGS (1)
  1. ATOVAQUONE. [Suspect]
     Active Substance: ATOVAQUONE
     Indication: MALARIA PROPHYLAXIS
     Dosage: 1 DF, QD
     Route: 048
     Dates: start: 20150416

REACTIONS (2)
  - Malaria [Unknown]
  - Drug ineffective [Unknown]
